FAERS Safety Report 21713931 (Version 1)
Quarter: 2022Q4

REPORT INFORMATION
  Report Type: Spontaneous
  Country: US (occurrence: None)
  Receive Date: 20221209
  Receipt Date: 20221209
  Transmission Date: 20230113
  Serious: Yes (Hospitalization)
  Sender: FDA-Public Use
  Company Number: None

PATIENT
  Age: 5 Year
  Sex: Male
  Weight: 15.1 kg

DRUGS (2)
  1. CYCLOPHOSPHAMIDE [Suspect]
     Active Substance: CYCLOPHOSPHAMIDE
     Dates: end: 20221011
  2. THIOTEPA [Suspect]
     Active Substance: THIOTEPA
     Dates: end: 20221008

REACTIONS (3)
  - Epstein-Barr virus antigen positive [None]
  - Post transplant lymphoproliferative disorder [None]
  - Lymphadenopathy [None]

NARRATIVE: CASE EVENT DATE: 20221122
